FAERS Safety Report 6373097-X (Version None)
Quarter: 2009Q3

REPORT INFORMATION
  Report Type: 
  Country: None (occurrence: None)
  Receive Date: 20090924
  Receipt Date: 20090611
  Transmission Date: 20100115
  Serious: Yes (Other)
  Sender: FDA-Public Use
  Company Number: US-ASTRAZENECA-2009UW03071

PATIENT
  Sex: Male
  Weight: 94.3 kg

DRUGS (4)
  1. SEROQUEL [Suspect]
     Indication: MENTAL DISORDER
     Dosage: 200 MG TO 300 MG
     Route: 048
     Dates: start: 20050301, end: 20070101
  2. ZOLOFT [Concomitant]
  3. TRAZODONE HCL [Concomitant]
  4. DEPAKOTE [Concomitant]

REACTIONS (2)
  - DIABETES MELLITUS [None]
  - TARDIVE DYSKINESIA [None]
